FAERS Safety Report 13819309 (Version 4)
Quarter: 2017Q3

REPORT INFORMATION
  Report Type: Spontaneous
  Country: US (occurrence: US)
  Receive Date: 20170801
  Receipt Date: 20170918
  Transmission Date: 20171127
  Serious: Yes (Other)
  Sender: FDA-Public Use
  Company Number: US-JNJFOC-20170719776

PATIENT
  Age: 41 Year
  Sex: Male
  Weight: 76.66 kg

DRUGS (3)
  1. SIMPONI [Suspect]
     Active Substance: GOLIMUMAB
     Indication: COLITIS ULCERATIVE
     Route: 058
     Dates: start: 2015
  2. OLANZAPINE. [Concomitant]
     Active Substance: OLANZAPINE
     Dosage: ONCE A DAY AT BEDTIME
     Route: 048
     Dates: start: 2016
  3. APRISO [Concomitant]
     Active Substance: MESALAMINE
     Indication: COLITIS ULCERATIVE
     Route: 048

REACTIONS (7)
  - Gastrointestinal disorder [Not Recovered/Not Resolved]
  - Accidental exposure to product [Not Recovered/Not Resolved]
  - Drug dose omission [Unknown]
  - Mucous stools [Not Recovered/Not Resolved]
  - Haematochezia [Not Recovered/Not Resolved]
  - Treatment noncompliance [Unknown]
  - Device malfunction [Unknown]

NARRATIVE: CASE EVENT DATE: 201707
